FAERS Safety Report 24261688 (Version 1)
Quarter: 2024Q3

REPORT INFORMATION
  Report Type: Spontaneous
  Country: US (occurrence: US)
  Receive Date: 20240829
  Receipt Date: 20240829
  Transmission Date: 20241017
  Serious: Yes (Other)
  Sender: CHEPLAPHARM
  Company Number: US-AstraZeneca-2024-260033

PATIENT
  Sex: Male
  Weight: 123.8 kg

DRUGS (12)
  1. BUDESONIDE [Suspect]
     Active Substance: BUDESONIDE
     Dosage: RESPIRATORY INHALATION USE
     Route: 055
  2. TEZSPIRE [Suspect]
     Active Substance: TEZEPELUMAB-EKKO
     Indication: Asthma
     Dosage: 210MG/ML EVERY FOUR WEEKS
     Route: 058
     Dates: start: 202405
  3. ATORVASTATIN [Concomitant]
     Active Substance: ATORVASTATIN
     Route: 048
  4. AZELASTINE [Concomitant]
     Active Substance: AZELASTINE\AZELASTINE HYDROCHLORIDE
     Dosage: DAILY DOSE: 137 MICROGRAM
     Route: 045
  5. CLARITHROMYCIN [Concomitant]
     Active Substance: CLARITHROMYCIN
     Dosage: DAILY DOSE: 500 MILLIGRAM
     Route: 048
  6. DUPILUMAB [Concomitant]
     Active Substance: DUPILUMAB
  7. FLUTICASONE FUROATE [Concomitant]
     Active Substance: FLUTICASONE FUROATE
     Route: 055
  8. FLUTICASONE PROPIONATE [Concomitant]
     Active Substance: FLUTICASONE PROPIONATE
     Route: 045
  9. LORATADINE [Concomitant]
     Active Substance: LORATADINE
     Route: 048
  10. MONTELUKAST [Concomitant]
     Active Substance: MONTELUKAST SODIUM
     Dosage: DAILY DOSE: 10 MILLIGRAM
     Route: 048
  11. XHANCE [Concomitant]
     Active Substance: FLUTICASONE PROPIONATE
     Route: 055
  12. ZOLPIDEM [Concomitant]
     Active Substance: ZOLPIDEM TARTRATE
     Dosage: DAILY DOSE: 10 MILLIGRAM
     Route: 048

REACTIONS (2)
  - Pseudomonas infection [Unknown]
  - Bronchitis bacterial [Unknown]
